FAERS Safety Report 7009141-6 (Version None)
Quarter: 2010Q3

REPORT INFORMATION
  Report Type: 
  Country: None (occurrence: None)
  Receive Date: 20100921
  Receipt Date: 20100908
  Transmission Date: 20110219
  Serious: Yes (Death, Hospitalization)
  Sender: FDA-Public Use
  Company Number: A-US2005-11294

PATIENT
  Age: 73 Year
  Sex: Female
  Weight: 103 kg

DRUGS (14)
  1. TRACLEER [Suspect]
     Indication: PULMONARY ARTERIAL HYPERTENSION
     Dosage: 125 MG, BID, ORAL ; ORAL
     Route: 048
     Dates: end: 20100212
  2. TRACLEER [Suspect]
     Indication: PULMONARY ARTERIAL HYPERTENSION
     Dosage: 125 MG, BID, ORAL ; ORAL
     Route: 048
     Dates: start: 20051101
  3. AGRYLIN [Concomitant]
  4. ALLOPURINOL [Concomitant]
  5. COMBIVENT [Concomitant]
  6. FOLIC ACID [Concomitant]
  7. CHONDROITIN SULFATE (CHONDROITIN SULFATE) [Concomitant]
  8. GLUCOSAMINE (GLUCOSAMINE) [Concomitant]
  9. FUROSEMIDE [Concomitant]
  10. POTASSIUM (POTASSIUM) [Concomitant]
  11. PREDNISONE [Concomitant]
  12. SILDENAFIL CITRATE [Concomitant]
  13. VIAGRA [Concomitant]
  14. ANAGESICS [Concomitant]

REACTIONS (9)
  - CARDIAC FAILURE CONGESTIVE [None]
  - CONSTIPATION [None]
  - FLUID OVERLOAD [None]
  - GASTROENTERITIS VIRAL [None]
  - HAEMOGLOBIN DECREASED [None]
  - MALAISE [None]
  - PAIN [None]
  - PERIPHERAL ISCHAEMIA [None]
  - WEIGHT INCREASED [None]
